FAERS Safety Report 5804463-6 (Version None)
Quarter: 2008Q3

REPORT INFORMATION
  Report Type: 
  Country: None (occurrence: None)
  Receive Date: 20080709
  Receipt Date: 20080701
  Transmission Date: 20090109
  Serious: Yes (Other)
  Sender: FDA-Public Use
  Company Number: A0736557A

PATIENT
  Sex: Male

DRUGS (1)
  1. PAXIL [Suspect]
     Indication: GENERALISED ANXIETY DISORDER

REACTIONS (6)
  - AKATHISIA [None]
  - ANXIETY [None]
  - DEPRESSION [None]
  - FEAR [None]
  - FEELING ABNORMAL [None]
  - SUICIDAL IDEATION [None]
